FAERS Safety Report 10879020 (Version 1)
Quarter: 2015Q1

REPORT INFORMATION
  Report Type: Spontaneous
  Country: NL (occurrence: NL)
  Receive Date: 20150302
  Receipt Date: 20150302
  Transmission Date: 20150721
  Serious: Yes (Death)
  Sender: FDA-Public Use
  Company Number: NL-ACTAVIS-2015-03247

PATIENT
  Age: 4 Year
  Sex: Female
  Weight: 17 kg

DRUGS (3)
  1. BACTRIMEL [Concomitant]
     Active Substance: SULFAMETHOXAZOLE\TRIMETHOPRIM
     Indication: PRODUCT USED FOR UNKNOWN INDICATION
     Dosage: 6 ML, DAILY
     Route: 048
     Dates: start: 20140701
  2. IRINOTECAN [Suspect]
     Active Substance: IRINOTECAN
     Indication: RHABDOMYOSARCOMA
     Dosage: 50 MG/M2, CYCLICAL;ADDITIONAL INFORMATION: 50 MG / M2 5 DAYS CONSECUTIVELY
     Route: 042
     Dates: start: 20141017
  3. LOPERAMIDE [Concomitant]
     Active Substance: LOPERAMIDE
     Indication: PRODUCT USED FOR UNKNOWN INDICATION
     Dosage: 1 DF, BID
     Route: 048
     Dates: start: 20141024

REACTIONS (1)
  - Neutropenic colitis [Fatal]

NARRATIVE: CASE EVENT DATE: 20141028
